FAERS Safety Report 7704928-6 (Version None)
Quarter: 2011Q3

REPORT INFORMATION
  Report Type: 
  Country: None (occurrence: None)
  Receive Date: 20110823
  Receipt Date: 20110816
  Transmission Date: 20111222
  Serious: Yes (Other)
  Sender: FDA-Public Use
  Company Number: BR-SANOFI-AVENTIS-2011SA052516

PATIENT
  Age: 84 Year
  Sex: Female
  Weight: 50 kg

DRUGS (7)
  1. LANTUS [Suspect]
     Indication: TYPE 2 DIABETES MELLITUS
  2. APIDRA [Concomitant]
     Indication: TYPE 2 DIABETES MELLITUS
     Route: 058
     Dates: start: 20110815
  3. METFORMIN HCL [Concomitant]
     Indication: TYPE 2 DIABETES MELLITUS
     Route: 048
  4. VENORUTON [Concomitant]
     Route: 048
  5. CORTICOSTEROIDS [Suspect]
     Dates: start: 20110728, end: 20110813
  6. VITAMINS NOS [Concomitant]
     Indication: EYE DISORDER
     Route: 048
  7. GLUCOFORMIN [Concomitant]
     Route: 048

REACTIONS (3)
  - HYPERGLYCAEMIA [None]
  - FEELING ABNORMAL [None]
  - SYNCOPE [None]
